FAERS Safety Report 24749324 (Version 1)
Quarter: 2024Q4

REPORT INFORMATION
  Report Type: Report from Study
  Country: US (occurrence: US)
  Receive Date: 20241218
  Receipt Date: 20241218
  Transmission Date: 20250114
  Serious: Yes (Hospitalization)
  Sender: ROCHE
  Company Number: US-ROCHE-10000160246

PATIENT

DRUGS (1)
  1. ALTEPLASE [Suspect]
     Active Substance: ALTEPLASE
     Indication: Basilar artery occlusion
     Route: 042

REACTIONS (2)
  - Cerebral haemorrhage [Unknown]
  - Pneumonia aspiration [Unknown]
